FAERS Safety Report 13764452 (Version 1)
Quarter: 2017Q3

REPORT INFORMATION
  Report Type: Spontaneous
  Country: US (occurrence: US)
  Receive Date: 20170718
  Receipt Date: 20170718
  Transmission Date: 20171127
  Serious: No
  Sender: FDA-Public Use
  Company Number: US-NOVOPROD-548410

PATIENT
  Age: 49 Year
  Sex: Male

DRUGS (1)
  1. TRESIBA FLEXTOUCH U200 [Suspect]
     Active Substance: INSULIN DEGLUDEC
     Indication: DIABETES MELLITUS
     Dosage: 20 U QD
     Route: 058
     Dates: start: 2016

REACTIONS (4)
  - Drug dose omission [Unknown]
  - Device failure [Unknown]
  - Somnolence [Unknown]
  - Blood glucose increased [Unknown]
